FAERS Safety Report 19362986 (Version 2)
Quarter: 2021Q3

REPORT INFORMATION
  Report Type: Spontaneous
  Country: US (occurrence: US)
  Receive Date: 20210602
  Receipt Date: 20210810
  Transmission Date: 20211014
  Serious: No
  Sender: FDA-Public Use
  Company Number: US-PFIZER INC-2021497971

PATIENT
  Age: 51 Year
  Sex: Female
  Weight: 86.17 kg

DRUGS (2)
  1. IBRANCE [Suspect]
     Active Substance: PALBOCICLIB
     Indication: BREAST CANCER FEMALE
     Dosage: 100 MG, CYCLIC (21 DAYS ON, 7 DAYS OFF)
     Route: 048
     Dates: start: 20210226
  2. IBRANCE [Suspect]
     Active Substance: PALBOCICLIB
     Indication: BONE NEOPLASM
     Dosage: 75 MG, CYCLIC (21 DAYS ON, THEN 7 DAYS OFF)
     Route: 048
     Dates: start: 20210226

REACTIONS (2)
  - Neutrophil count decreased [Unknown]
  - Fatigue [Unknown]
